FAERS Safety Report 5017669-3 (Version None)
Quarter: 2006Q2

REPORT INFORMATION
  Report Type: 
  Country: None (occurrence: None)
  Receive Date: 20060605
  Receipt Date: 20060523
  Transmission Date: 20061013
  Serious: Yes (Hospitalization)
  Sender: FDA-Public Use
  Company Number: FR-JNJFOC-20060505157

PATIENT
  Age: 51 Year
  Sex: Male
  Weight: 70 kg

DRUGS (13)
  1. REMICADE [Suspect]
     Route: 042
  2. REMICADE [Suspect]
     Dosage: SEVENTH INFUSION
     Route: 042
  3. REMICADE [Suspect]
     Dosage: SECOND INFUSION
     Route: 042
  4. REMICADE [Suspect]
     Dosage: SECOND INFUSION
     Route: 042
  5. REMICADE [Suspect]
     Indication: ANKYLOSING SPONDYLITIS
     Dosage: FIRST INFUSION
     Route: 042
  6. DELURSAN [Suspect]
     Indication: DRUG USE FOR UNKNOWN INDICATION
     Route: 048
  7. NOVATREX [Suspect]
     Indication: ANKYLOSING SPONDYLITIS
     Route: 048
  8. SPECIAFOLDINE [Concomitant]
     Dosage: 5 DAY/7
     Route: 048
  9. CORTANCYL [Concomitant]
     Route: 048
  10. CONTRAMAL [Concomitant]
     Route: 048
  11. ACETAMINOPHEN [Concomitant]
     Dosage: {4G QD
     Route: 048
  12. FORLAX [Concomitant]
     Route: 048
  13. OGAST [Concomitant]
     Route: 048

REACTIONS (5)
  - OPTIC NEURITIS [None]
  - RETINAL ARTERY OCCLUSION [None]
  - RETINAL HAEMORRHAGE [None]
  - SCOTOMA [None]
  - VISUAL ACUITY REDUCED [None]
